FAERS Safety Report 12892956 (Version 1)
Quarter: 2016Q4

REPORT INFORMATION
  Report Type: Spontaneous
  Country: US (occurrence: US)
  Receive Date: 20161028
  Receipt Date: 20161028
  Transmission Date: 20170207
  Serious: No
  Sender: FDA-Public Use
  Company Number: US-BAYER-2016-205518

PATIENT
  Age: 26 Year

DRUGS (1)
  1. CIPRO [Suspect]
     Active Substance: CIPROFLOXACIN HYDROCHLORIDE
     Indication: URINARY TRACT INFECTION

REACTIONS (6)
  - Headache [None]
  - Pharmacophobia [None]
  - Nausea [None]
  - Feeling abnormal [None]
  - Emotional distress [None]
  - Arthralgia [None]
